FAERS Safety Report 9396237 (Version 1)
Quarter: 2013Q3

REPORT INFORMATION
  Report Type: Spontaneous
  Country: BR (occurrence: BR)
  Receive Date: 20130711
  Receipt Date: 20130711
  Transmission Date: 20140515
  Serious: Yes (Other)
  Sender: FDA-Public Use
  Company Number: BR-PFIZER INC-2013203423

PATIENT
  Age: 82 Year
  Sex: Female

DRUGS (2)
  1. ZOLOFT [Suspect]
     Dosage: 50 MG, DAILY
     Route: 048
  2. FRONTAL [Suspect]
     Indication: SLEEP DISORDER
     Dosage: 2 MG, DAILY
     Route: 048
     Dates: start: 20120708

REACTIONS (2)
  - Lower limb fracture [Unknown]
  - Off label use [Unknown]
